FAERS Safety Report 5904996-8 (Version None)
Quarter: 2008Q4

REPORT INFORMATION
  Report Type: 
  Country: None (occurrence: None)
  Receive Date: 20081001
  Receipt Date: 20080919
  Transmission Date: 20090506
  Serious: Yes (Other)
  Sender: FDA-Public Use
  Company Number: JP-ROCHE-585323

PATIENT
  Age: 80 Year
  Sex: Female

DRUGS (8)
  1. XELODA [Suspect]
     Indication: LARGE INTESTINE CARCINOMA
     Dosage: DRUG NAME REPORTED AS XELODA 300.  2 COURSES.
     Route: 048
  2. ZOMETA [Suspect]
     Indication: HYPERCALCAEMIA
     Route: 041
  3. PREDONINE [Suspect]
     Indication: DRUG USE FOR UNKNOWN INDICATION
     Route: 065
  4. PREDONINE [Suspect]
     Dosage: DOSE DECREASED
     Route: 065
  5. IRINOTECAN HCL [Concomitant]
     Route: 041
  6. FLUOROURACIL [Concomitant]
     Route: 041
  7. ELPLAT [Concomitant]
     Route: 041
  8. LEVOFOLINATE [Concomitant]
     Route: 041

REACTIONS (1)
  - STRABISMUS [None]
